FAERS Safety Report 24305445 (Version 1)
Quarter: 2024Q3

REPORT INFORMATION
  Report Type: Report from Study
  Country: US (occurrence: US)
  Receive Date: 20240911
  Receipt Date: 20240911
  Transmission Date: 20241016
  Serious: Yes (Other)
  Sender: ABBVIE
  Company Number: US-ABBVIE-5406236

PATIENT
  Sex: Female

DRUGS (2)
  1. HUMIRA [Suspect]
     Active Substance: ADALIMUMAB
     Indication: Rheumatoid arthritis
     Dosage: CITRATE FREE.?FORM STRENGTH WAS 40 MILLIGRAM.
     Route: 058
     Dates: start: 20240905
  2. HUMIRA [Suspect]
     Active Substance: ADALIMUMAB
     Dosage: CITRATE FREE.?FORM STRENGTH WAS 40 MILLIGRAM.
     Route: 058
     Dates: start: 20211220, end: 2022

REACTIONS (3)
  - Hernia [Unknown]
  - Eye operation [Unknown]
  - Spinal operation [Unknown]
